FAERS Safety Report 10716702 (Version 1)
Quarter: 2015Q1

REPORT INFORMATION
  Report Type: Spontaneous
  Country: US (occurrence: None)
  Receive Date: 20150115
  Receipt Date: 20150115
  Transmission Date: 20150721
  Serious: Yes (Life-Threatening, Disabling, Other)
  Sender: FDA-Public Use
  Company Number: None

PATIENT
  Age: 58 Year
  Sex: Female
  Weight: 97.52 kg

DRUGS (2)
  1. DULOXETINE [Suspect]
     Active Substance: DULOXETINE
     Indication: BIPOLAR DISORDER
     Dosage: 1 PILL
     Route: 048
     Dates: start: 20140301, end: 20140930
  2. DULOXETINE [Suspect]
     Active Substance: DULOXETINE
     Indication: NEUROPATHY PERIPHERAL
     Dosage: 1 PILL
     Route: 048
     Dates: start: 20140301, end: 20140930

REACTIONS (6)
  - Suicidal ideation [None]
  - Economic problem [None]
  - Anger [None]
  - Product substitution issue [None]
  - Hypersensitivity [None]
  - Anxiety [None]

NARRATIVE: CASE EVENT DATE: 20140904
